FAERS Safety Report 14511826 (Version 3)
Quarter: 2018Q2

REPORT INFORMATION
  Report Type: Spontaneous
  Country: US (occurrence: US)
  Receive Date: 20180209
  Receipt Date: 20180409
  Transmission Date: 20180711
  Serious: Yes (Other)
  Sender: FDA-Public Use
  Company Number: US-PFIZER INC-2018051897

PATIENT
  Age: 70 Year
  Sex: Female
  Weight: 72.57 kg

DRUGS (4)
  1. LYRICA [Suspect]
     Active Substance: PREGABALIN
     Indication: PARAESTHESIA
  2. LYRICA [Suspect]
     Active Substance: PREGABALIN
     Indication: NEURALGIA
     Dosage: 50 MG, FOUR TIMES A DAY (EVERY 6 HOURS)
     Route: 048
     Dates: start: 201310, end: 20180102
  3. LYRICA [Suspect]
     Active Substance: PREGABALIN
     Indication: DIABETIC NEUROPATHY
  4. LYRICA [Suspect]
     Active Substance: PREGABALIN
     Indication: PAIN IN EXTREMITY

REACTIONS (17)
  - Rash [Unknown]
  - Poor quality drug administered [Unknown]
  - Balance disorder [Recovered/Resolved]
  - Headache [Unknown]
  - Product odour abnormal [Unknown]
  - Fall [Recovered/Resolved]
  - Swelling face [Recovering/Resolving]
  - Paralysis [Unknown]
  - Paraesthesia [Unknown]
  - Parosmia [Recovering/Resolving]
  - Weight increased [Recovering/Resolving]
  - Pain in extremity [Not Recovered/Not Resolved]
  - Wound haemorrhage [Unknown]
  - Peripheral swelling [Recovering/Resolving]
  - Drug ineffective [Unknown]
  - Blister [Not Recovered/Not Resolved]
  - Pruritus [Not Recovered/Not Resolved]

NARRATIVE: CASE EVENT DATE: 201310
